FAERS Safety Report 5902404-4 (Version None)
Quarter: 2008Q3

REPORT INFORMATION
  Report Type: 
  Country: None (occurrence: None)
  Receive Date: 20080929
  Receipt Date: 20080919
  Transmission Date: 20090109
  Serious: Yes (Hospitalization)
  Sender: FDA-Public Use
  Company Number: FR-ASTRAZENECA-2008CG01373

PATIENT
  Age: 24609 Day
  Sex: Female

DRUGS (2)
  1. FASLODEX [Suspect]
     Indication: BREAST CANCER FEMALE
     Route: 030
     Dates: start: 20071101
  2. FOSAMAX [Suspect]
     Indication: OSTEOPOROSIS

REACTIONS (1)
  - TRANSIENT ISCHAEMIC ATTACK [None]
